FAERS Safety Report 6420552-X (Version None)
Quarter: 2009Q4

REPORT INFORMATION
  Report Type: 
  Country: None (occurrence: None)
  Receive Date: 20091027
  Receipt Date: 20091019
  Transmission Date: 20100525
  Serious: Yes (Hospitalization, Other)
  Sender: FDA-Public Use
  Company Number: 2009AL006763

PATIENT
  Sex: Male

DRUGS (12)
  1. FEVERALL [Suspect]
     Dosage: PO
     Route: 048
  2. ACETAMINOPHEN AND CODEINE PHOSPHATE [Concomitant]
  3. REMICADE [Concomitant]
  4. FLUOXETINE [Concomitant]
  5. LANSOPRAZOLE [Concomitant]
  6. PARRAFIN [Concomitant]
  7. BUSCOPAN [Concomitant]
  8. ASACOL [Concomitant]
  9. CIPROFLOXACIN [Concomitant]
  10. AZATHIOPRINE [Concomitant]
  11. HYOSCINE [Concomitant]
  12. MIL-PAR [Concomitant]

REACTIONS (3)
  - EUPHORIC MOOD [None]
  - GAMMA-GLUTAMYLTRANSFERASE INCREASED [None]
  - MULTIPLE DRUG OVERDOSE [None]
